FAERS Safety Report 9164145 (Version 4)
Quarter: 2013Q2

REPORT INFORMATION
  Report Type: Spontaneous
  Country: JP (occurrence: JP)
  Receive Date: 20130315
  Receipt Date: 20130422
  Transmission Date: 20140414
  Serious: Yes (Death, Other)
  Sender: FDA-Public Use
  Company Number: JP-009507513-1303JPN006592

PATIENT
  Age: 56 Year
  Sex: Male
  Weight: 70 kg

DRUGS (8)
  1. PEGINTRON [Suspect]
     Indication: CHRONIC HEPATITIS C
     Dosage: 1.5 MICROGRAM PER KILOGRAM, QW
     Route: 058
     Dates: start: 20130213, end: 20130306
  2. REBETOL [Suspect]
     Indication: CHRONIC HEPATITIS C
     Dosage: 800 MG, QD
     Route: 048
     Dates: start: 20130213, end: 20130308
  3. TELAVIC [Suspect]
     Indication: CHRONIC HEPATITIS C
     Dosage: 2250 MG, QD
     Route: 048
     Dates: start: 20130213, end: 20130217
  4. TELAVIC [Suspect]
     Dosage: 1500 MG, QD
     Route: 048
     Dates: start: 20130218, end: 20130308
  5. ALFAROL [Concomitant]
     Indication: CHRONIC HEPATITIS C
     Dosage: 0.5 MICROGRAM, QD
     Route: 048
     Dates: start: 20130213, end: 20130308
  6. CALONAL [Concomitant]
     Indication: PROPHYLAXIS
     Dosage: 400 MG, PRN
     Route: 048
     Dates: start: 20130213, end: 20130306
  7. LOCHOL (FLUVASTATIN SODIUM) [Concomitant]
     Indication: CHRONIC HEPATITIS C
     Dosage: 30 MG, QD
     Route: 048
     Dates: start: 20130223, end: 20130308
  8. LOXONIN [Concomitant]
     Indication: PROPHYLAXIS
     Dosage: 60 MG, QD
     Route: 048
     Dates: start: 20130306, end: 20130308

REACTIONS (2)
  - Ventricular fibrillation [Fatal]
  - Renal impairment [Recovering/Resolving]
